FAERS Safety Report 17439985 (Version 1)
Quarter: 2020Q1

REPORT INFORMATION
  Report Type: Spontaneous
  Country: US (occurrence: US)
  Receive Date: 20200220
  Receipt Date: 20200220
  Transmission Date: 20200409
  Serious: No
  Sender: FDA-Public Use
  Company Number: US-PFIZER INC-2020073569

PATIENT
  Age: 37 Year
  Sex: Female

DRUGS (1)
  1. XELJANZ XR [Suspect]
     Active Substance: TOFACITINIB CITRATE
     Indication: RHEUMATOID ARTHRITIS
     Dosage: 11 MG, DAILY
     Route: 048
     Dates: start: 201907

REACTIONS (6)
  - Pruritus [Recovering/Resolving]
  - Eczema [Unknown]
  - Erythema [Recovering/Resolving]
  - Sinus disorder [Recovering/Resolving]
  - Dermatitis [Unknown]
  - Rosacea [Unknown]
